FAERS Safety Report 11912749 (Version 1)
Quarter: 2016Q1

REPORT INFORMATION
  Report Type: Spontaneous
  Country: US (occurrence: None)
  Receive Date: 20160112
  Receipt Date: 20160112
  Transmission Date: 20160526
  Serious: No
  Sender: FDA-Public Use
  Company Number: None

PATIENT
  Age: 70 Year
  Sex: Female
  Weight: 57.61 kg

DRUGS (9)
  1. CENTRUM SILVER WOMEN 50+ [Concomitant]
  2. CALTRATE CALCIUM + VIT D [Concomitant]
  3. ZOLEDRONIC ACID INJECTION [Suspect]
     Active Substance: ZOLEDRONIC ACID
     Indication: OSTEOPOROSIS
     Dosage: 1 INFUSION AT HOSP. 1 YR INJECTION - OVER TIME
     Dates: start: 20151210
  4. VITAMIN D3 [Concomitant]
     Active Substance: CHOLECALCIFEROL
  5. HZTZ [Concomitant]
  6. OMEGA 3 FISH OIL [Concomitant]
     Active Substance: FISH OIL\OMEGA-3 FATTY ACIDS
  7. POTASSIUM CHLORIDE EXTENDED RELEASE [Concomitant]
     Active Substance: POTASSIUM CHLORIDE
  8. SYNTHROID [Concomitant]
     Active Substance: LEVOTHYROXINE SODIUM
  9. BABY ASPIRIN [Concomitant]
     Active Substance: ASPIRIN

REACTIONS (7)
  - Dyspnoea [None]
  - Pain [None]
  - Hyperhidrosis [None]
  - Abasia [None]
  - Dizziness [None]
  - Fatigue [None]
  - Influenza [None]

NARRATIVE: CASE EVENT DATE: 20151218
